FAERS Safety Report 5762954-0 (Version None)
Quarter: 2008Q2

REPORT INFORMATION
  Report Type: 
  Country: None (occurrence: None)
  Receive Date: 20080522
  Receipt Date: 20080522
  Transmission Date: 20081010
  Serious: No
  Sender: FDA-Public Use
  Company Number: None

PATIENT
  Sex: Male
  Weight: 87.0906 kg

DRUGS (1)
  1. LEVAQUIN [Suspect]
     Indication: PNEUMONIA
     Dosage: ONE EVERY DAY PO
     Route: 048
     Dates: start: 20080401, end: 20080414

REACTIONS (4)
  - ARTHRALGIA [None]
  - NO THERAPEUTIC RESPONSE [None]
  - PAIN [None]
  - TENDON DISORDER [None]
